FAERS Safety Report 5256963-8 (Version None)
Quarter: 2007Q1

REPORT INFORMATION
  Report Type: 
  Country: None (occurrence: None)
  Receive Date: 20070305
  Receipt Date: 20070305
  Transmission Date: 20070707
  Serious: No
  Sender: FDA-Public Use
  Company Number: None

PATIENT
  Sex: Female
  Weight: 81.6475 kg

DRUGS (2)
  1. NASAL DECONGESTANT TABLETS 30MG CVS [Suspect]
     Indication: NASAL CONGESTION
     Dosage: 2 30MG TABLETS EVERY FOUR HOURS PO
     Route: 048
     Dates: start: 20070301, end: 20070301
  2. NASAL DECONGESTANT TABLETS 30MG CVS [Suspect]
     Indication: SINUS CONGESTION
     Dosage: 2 30MG TABLETS EVERY FOUR HOURS PO
     Route: 048
     Dates: start: 20070301, end: 20070301

REACTIONS (1)
  - DRUG INEFFECTIVE [None]
